FAERS Safety Report 8808929 (Version 1)
Quarter: 2012Q4

REPORT INFORMATION
  Report Type: 
  Country: MX (occurrence: MX)
  Receive Date: 20120926
  Receipt Date: 20120926
  Transmission Date: 20130627
  Serious: Yes (Other)
  Sender: FDA-Public Use
  Company Number: PHHY2012MX083346

PATIENT
  Sex: Female

DRUGS (4)
  1. EXELON PATCH [Suspect]
     Indication: DEMENTIA ALZHEIMER^S TYPE
     Dosage: 1 patch (4.6 mg) daily
     Route: 062
  2. EPIVAL [Concomitant]
     Indication: CONVULSION
     Dosage: 1 DF, daily
  3. AMLODIPINE [Concomitant]
     Indication: BLOOD PRESSURE
     Dosage: 1 DF, daily
  4. NEXIUM [Concomitant]
     Indication: ABDOMINAL PAIN UPPER
     Dosage: 1 DF, daily

REACTIONS (2)
  - Brain neoplasm [Not Recovered/Not Resolved]
  - General physical health deterioration [Not Recovered/Not Resolved]
